FAERS Safety Report 24020346 (Version 1)
Quarter: 2024Q2

REPORT INFORMATION
  Report Type: Spontaneous
  Country: US (occurrence: None)
  Receive Date: 20240627
  Receipt Date: 20240627
  Transmission Date: 20240716
  Serious: Yes (Hospitalization)
  Sender: FDA-Public Use
  Company Number: None

PATIENT
  Age: 48 Year
  Sex: Female
  Weight: 60.6 kg

DRUGS (1)
  1. ALEMTUZUMAB [Suspect]
     Active Substance: ALEMTUZUMAB
     Indication: Multiple sclerosis
     Dosage: FREQUENCY : DAILY;?
     Route: 042
     Dates: start: 20240129, end: 20240131

REACTIONS (9)
  - Oropharyngeal pain [None]
  - Musculoskeletal stiffness [None]
  - Arthralgia [None]
  - Rash [None]
  - Confusional state [None]
  - Pyrexia [None]
  - Leukocytosis [None]
  - Still^s disease [None]
  - Haemophagocytic lymphohistiocytosis [None]

NARRATIVE: CASE EVENT DATE: 20240325
